FAERS Safety Report 9289895 (Version 2)
Quarter: 2013Q2

REPORT INFORMATION
  Report Type: Spontaneous
  Country: JP (occurrence: JP)
  Receive Date: 20130515
  Receipt Date: 20130523
  Transmission Date: 20140414
  Serious: Yes (Death)
  Sender: FDA-Public Use
  Company Number: PHHY2013JP047770

PATIENT
  Age: 45 Year
  Sex: Male

DRUGS (3)
  1. CLOZARIL [Suspect]
     Indication: SCHIZOPHRENIA
     Dosage: UNK
     Route: 048
     Dates: start: 20110304
  2. JANUVIA [Suspect]
     Dosage: UNK
  3. GLUBES [Suspect]
     Dosage: UNK

REACTIONS (2)
  - Pancreatic carcinoma [Fatal]
  - Hepatic failure [Fatal]
